FAERS Safety Report 6938488-4 (Version None)
Quarter: 2010Q3

REPORT INFORMATION
  Report Type: 
  Country: None (occurrence: None)
  Receive Date: 20100824
  Receipt Date: 20100810
  Transmission Date: 20110219
  Serious: Yes (Other)
  Sender: FDA-Public Use
  Company Number: JP-ELI_LILLY_AND_COMPANY-JP201007005093

PATIENT
  Sex: Female
  Weight: 58.5 kg

DRUGS (10)
  1. CYMBALTA [Suspect]
     Indication: DEPRESSION
     Dosage: 20 MG, DAILY (1/D)
     Route: 048
     Dates: start: 20100604, end: 20100610
  2. CYMBALTA [Suspect]
     Dosage: 40 MG, DAILY (1/D)
     Route: 048
     Dates: start: 20100611, end: 20100708
  3. NEUOMIL [Concomitant]
     Indication: DEPRESSION
     Dosage: 75 MG, DAILY (1/D)
     Route: 048
     Dates: start: 20100419
  4. SULPIRIDE [Concomitant]
     Dosage: 150 MG, DAILY (1/D)
     Route: 048
     Dates: start: 20100419
  5. ALPRAZOLAM [Concomitant]
     Indication: ANXIETY
     Dosage: 1.2 MG, DAILY (1/D)
     Route: 048
     Dates: start: 20100419
  6. ROHYPNOL [Concomitant]
     Indication: INSOMNIA
     Dosage: 2 MG, DAILY (1/D)
     Route: 048
     Dates: start: 20100419
  7. AMLODIPINE [Concomitant]
     Indication: HYPERTENSION
     Dosage: 5 MG, DAILY (1/D)
     Route: 048
     Dates: start: 20100419
  8. MAGMITT [Concomitant]
     Indication: CONSTIPATION
     Dosage: 1500 MG, DAILY (1/D)
     Route: 048
     Dates: start: 20100419
  9. AMOBAN [Concomitant]
     Indication: INSOMNIA
     Dosage: 7.5 MG, DAILY (1/D)
     Route: 048
     Dates: start: 20100419
  10. PURSENNID /00571902/ [Concomitant]
     Indication: CONSTIPATION
     Dosage: 12 MG, DAILY (1/D)
     Route: 048
     Dates: start: 20100419

REACTIONS (3)
  - OEDEMA [None]
  - PLATELET COUNT DECREASED [None]
  - WHITE BLOOD CELL COUNT DECREASED [None]
